FAERS Safety Report 8525305 (Version 3)
Quarter: 2014Q4

REPORT INFORMATION
  Report Type: Spontaneous
  Country: US (occurrence: US)
  Receive Date: 20120423
  Receipt Date: 20141110
  Transmission Date: 20150529
  Serious: Yes (Death, Hospitalization, Disabling, Other)
  Sender: FDA-Public Use
  Company Number: US-SANOFI-AVENTIS-2012SA027683

PATIENT
  Age: 63 Year
  Sex: Female

DRUGS (1)
  1. PLAVIX [Suspect]
     Active Substance: CLOPIDOGREL BISULFATE
     Indication: PRODUCT USED FOR UNKNOWN INDICATION
     Route: 065

REACTIONS (6)
  - Injury [Unknown]
  - Physical disability [Unknown]
  - Anhedonia [Unknown]
  - Cerebral haemorrhage [Fatal]
  - Pain [Unknown]
  - Tension [Unknown]
